FAERS Safety Report 15385718 (Version 1)
Quarter: 2018Q3

REPORT INFORMATION
  Report Type: Spontaneous
  Country: JP (occurrence: JP)
  Receive Date: 20180914
  Receipt Date: 20180914
  Transmission Date: 20181010
  Serious: Yes (Other)
  Sender: FDA-Public Use
  Company Number: JP-009507513-1809JPN001013J

PATIENT
  Age: 7 Decade
  Sex: Male

DRUGS (4)
  1. MEROPEN [Concomitant]
     Active Substance: MEROPENEM
     Indication: PATHOGEN RESISTANCE
     Dosage: UNK
     Route: 065
  2. VANCOMYCIN [Concomitant]
     Active Substance: VANCOMYCIN
     Indication: STAPHYLOCOCCAL INFECTION
     Dosage: UNK
     Route: 065
  3. CUBICIN [Suspect]
     Active Substance: DAPTOMYCIN
     Dosage: 4 MG/KG, UNK
     Route: 041
  4. CUBICIN [Suspect]
     Active Substance: DAPTOMYCIN
     Indication: STAPHYLOCOCCAL INFECTION
     Dosage: UNK MG/KG, UNK
     Route: 041

REACTIONS (5)
  - Liver disorder [Unknown]
  - Surgery [Unknown]
  - Diarrhoea [Unknown]
  - Staphylococcal infection [Unknown]
  - Platelet count decreased [Unknown]
